FAERS Safety Report 7726494-1 (Version None)
Quarter: 2011Q3

REPORT INFORMATION
  Report Type: 
  Country: None (occurrence: None)
  Receive Date: 20110902
  Receipt Date: 20110822
  Transmission Date: 20111222
  Serious: Yes (Other)
  Sender: FDA-Public Use
  Company Number: PHHY2011GB76868

PATIENT
  Age: 28 Year
  Sex: Female

DRUGS (2)
  1. METYRAPONE [Suspect]
     Indication: HYPERCORTICOIDISM
     Dosage: UNK UKN, UNK
  2. INSULIN [Concomitant]
     Dosage: UNK UKN, UNK

REACTIONS (3)
  - TYPE 2 DIABETES MELLITUS [None]
  - MATERNAL EXPOSURE DURING PREGNANCY [None]
  - WEIGHT DECREASED [None]
